FAERS Safety Report 9492817 (Version 2)
Quarter: 2013Q3

REPORT INFORMATION
  Report Type: Report from Study
  Country: BR (occurrence: BR)
  Receive Date: 20130830
  Receipt Date: 20130830
  Transmission Date: 20140515
  Serious: Yes (Hospitalization, Other)
  Sender: FDA-Public Use
  Company Number: BR-ABBOTT-13P-020-1099017-00

PATIENT
  Age: 50 Year
  Sex: Female
  Weight: 51 kg

DRUGS (10)
  1. HUMIRA [Suspect]
     Indication: CROHN^S DISEASE
     Dosage: WEEK 0
     Route: 058
     Dates: start: 20130510, end: 20130510
  2. HUMIRA [Suspect]
     Dosage: WEEK 2
     Route: 058
     Dates: start: 20130524, end: 20130524
  3. HUMIRA [Suspect]
     Route: 058
  4. HUMIRA [Suspect]
     Route: 058
     Dates: start: 20130805
  5. MAREVAN [Concomitant]
     Indication: ANTICOAGULANT THERAPY
     Route: 048
     Dates: start: 2008
  6. OMEPRAZOLE [Concomitant]
     Indication: GASTRIC DISORDER
     Route: 048
     Dates: start: 2003
  7. CALCIUM [Concomitant]
     Indication: MINERAL SUPPLEMENTATION
     Route: 048
     Dates: start: 2003
  8. QUINOFLOX [Concomitant]
     Indication: ANTIBIOTIC THERAPY
     Route: 048
     Dates: start: 201304
  9. QUINOFLOX [Concomitant]
     Route: 048
     Dates: start: 201306
  10. ENTOCORT [Concomitant]
     Indication: CROHN^S DISEASE
     Route: 048
     Dates: start: 20130530

REACTIONS (11)
  - Blood potassium decreased [Recovering/Resolving]
  - Muscular weakness [Unknown]
  - VIIth nerve paralysis [Recovering/Resolving]
  - Fatigue [Recovered/Resolved]
  - Heart rate increased [Recovered/Resolved]
  - Injection site erythema [Recovering/Resolving]
  - Arthralgia [Recovering/Resolving]
  - Injection site pain [Unknown]
  - Crohn^s disease [Recovering/Resolving]
  - Dysphagia [Unknown]
  - Diarrhoea [Recovering/Resolving]
